FAERS Safety Report 8344942-3 (Version None)
Quarter: 2012Q2

REPORT INFORMATION
  Report Type: 
  Country: None (occurrence: None)
  Receive Date: 20120508
  Receipt Date: 20120430
  Transmission Date: 20120825
  Serious: Yes (Hospitalization, Disabling)
  Sender: FDA-Public Use
  Company Number: US-MERCK-1110USA02012

PATIENT
  Age: 50 Year
  Sex: Female

DRUGS (4)
  1. FOSAMAX [Suspect]
     Route: 048
     Dates: start: 19980501, end: 20090801
  2. FOSAMAX [Suspect]
     Indication: OSTEOPOROSIS PROPHYLAXIS
     Route: 048
     Dates: start: 19980501, end: 20090801
  3. FOSAMAX [Suspect]
     Route: 048
     Dates: start: 20080201
  4. ALENDRONATE SODIUM [Suspect]
     Route: 065
     Dates: start: 20080901

REACTIONS (7)
  - FEMUR FRACTURE [None]
  - COMPLEX REGIONAL PAIN SYNDROME [None]
  - LIMB INJURY [None]
  - HUMERUS FRACTURE [None]
  - HYPERCHOLESTEROLAEMIA [None]
  - HYPERTENSION [None]
  - OSTEOPOROSIS [None]
